FAERS Safety Report 5460956-5 (Version None)
Quarter: 2007Q3

REPORT INFORMATION
  Report Type: 
  Country: None (occurrence: None)
  Receive Date: 20070823
  Receipt Date: 20070521
  Transmission Date: 20080115
  Serious: No
  Sender: FDA-Public Use
  Company Number: 2007SP009793

PATIENT
  Age: 20 Year
  Sex: Female

DRUGS (4)
  1. NOXAFIL [Suspect]
     Indication: DRUG USE FOR UNKNOWN INDICATION
  2. MICAFUNGIN [Concomitant]
  3. TACROLIMUS [Concomitant]
  4. VORICONAZOLE [Concomitant]

REACTIONS (1)
  - MENTAL STATUS CHANGES [None]
